FAERS Safety Report 7813274-1 (Version None)
Quarter: 2011Q4

REPORT INFORMATION
  Report Type: 
  Country: None (occurrence: None)
  Receive Date: 20111013
  Receipt Date: 20110930
  Transmission Date: 20120403
  Serious: Yes (Other)
  Sender: FDA-Public Use
  Company Number: US-ELI_LILLY_AND_COMPANY-US201009003735

PATIENT
  Sex: Female

DRUGS (4)
  1. FORTEO [Suspect]
     Dosage: 20 UG, DAILY (1/D)
  2. VITAMIN D [Concomitant]
  3. FORTEO [Suspect]
     Indication: OSTEOPOROSIS
     Dosage: 20 UG, DAILY (1/D)
     Dates: start: 20100903
  4. FORTEO [Suspect]
     Dosage: 20 UG, DAILY (1/D)

REACTIONS (23)
  - CEREBROVASCULAR ACCIDENT [None]
  - ARTHROPATHY [None]
  - PRURITUS [None]
  - CARDIAC MURMUR [None]
  - BACK PAIN [None]
  - LIMB DISCOMFORT [None]
  - MUSCULOSKELETAL PAIN [None]
  - CRYING [None]
  - PAIN IN EXTREMITY [None]
  - MOVEMENT DISORDER [None]
  - ASTHENIA [None]
  - DIARRHOEA [None]
  - ABDOMINAL DISCOMFORT [None]
  - EMOTIONAL DISTRESS [None]
  - SKIN MASS [None]
  - GAIT DISTURBANCE [None]
  - PAIN [None]
  - EMOTIONAL DISORDER [None]
  - SOMNOLENCE [None]
  - URINE ODOUR ABNORMAL [None]
  - MYALGIA [None]
  - FATIGUE [None]
  - DYSGRAPHIA [None]
